FAERS Safety Report 10406135 (Version 1)
Quarter: 2014Q3

REPORT INFORMATION
  Report Type: Spontaneous
  Country: US (occurrence: None)
  Receive Date: 20140822
  Receipt Date: 20140822
  Transmission Date: 20150326
  Serious: No
  Sender: FDA-Public Use
  Company Number: None

PATIENT

DRUGS (2)
  1. SUBUTEX [Suspect]
     Active Substance: BUPRENORPHINE HYDROCHLORIDE
  2. LORATADINE. [Suspect]
     Active Substance: LORATADINE

REACTIONS (5)
  - Product physical issue [None]
  - Economic problem [None]
  - Product taste abnormal [None]
  - Product commingling [None]
  - Drug dispensing error [None]

NARRATIVE: CASE EVENT DATE: 2014
